FAERS Safety Report 7973178-0 (Version None)
Quarter: 2011Q4

REPORT INFORMATION
  Report Type: 
  Country: None (occurrence: None)
  Receive Date: 20111209
  Receipt Date: 20111125
  Transmission Date: 20120403
  Serious: Yes (Hospitalization)
  Sender: FDA-Public Use
  Company Number: 1000025932

PATIENT
  Age: 79 Year
  Sex: Female

DRUGS (10)
  1. VASTEN (PRAVASTATIN) (20 MILLIGRAM, TABLETS) [Suspect]
     Indication: HYPERCHOLESTEROLAEMIA
     Dosage: 20 MG (20 MG, 1 IN 1 D), ORAL
     Route: 048
  2. XATRAL (ALFUZOSIN HYDROCHLORIDE) (100 MILLIGRAM, TABLETS) (ALFUZOSIN H [Concomitant]
  3. KARDEGIC (ACETYLSALICYLATE LYSINE) (75 MILLIGRAM, POWDER) (ACETYLSALIC [Concomitant]
  4. LORAZEPAM [Suspect]
     Indication: ANXIETY
     Dosage: 1 MG (1 MG, 1 IN 1 D), ORAL
     Route: 048
  5. TEGRETOL [Suspect]
     Indication: EPILEPSY
     Dosage: 200 MG (100 MG, 2 IN 1 D), ORAL
     Route: 048
  6. PLAVIX (CLOPIDOGREL BISULFATE) 975 MILLIGRAM, TABLETS) (CLOPIDOGREL BI [Concomitant]
  7. MEMANTINE HCL [Suspect]
     Indication: DEMENTIA ALZHEIMER'S TYPE
     Dosage: 20 MG (20 MG,1 IN 1 D), ORAL
     Route: 048
  8. RISPERDAL [Suspect]
     Indication: AGGRESSION
     Dosage: 0.5 DOSAGE FORM (0.25 DOSAGE FORM, 2 IN 1 D),  ORAL
     Route: 048
     Dates: start: 20101109, end: 20101227
  9. COVERSYL (PERINDOPRIL) (2.5 MILLIGRAM) [Suspect]
     Indication: HYPERTENSION
     Dosage: 1.25 MG (1.25 MG, 1 IN 1 D)
  10. FORLAX (MACROGOL) (TABLETS) (MACROGOL) [Concomitant]

REACTIONS (13)
  - MUSCULOSKELETAL STIFFNESS [None]
  - PHOTOPHOBIA [None]
  - HYPOALBUMINAEMIA [None]
  - COMA SCALE ABNORMAL [None]
  - MALNUTRITION [None]
  - MENINGEAL DISORDER [None]
  - MIOSIS [None]
  - HYPERNATRAEMIA [None]
  - FALL [None]
  - DEHYDRATION [None]
  - HYPERTHERMIA [None]
  - SOMNOLENCE [None]
  - CRANIOCEREBRAL INJURY [None]
